FAERS Safety Report 26098357 (Version 1)
Quarter: 2025Q4

REPORT INFORMATION
  Report Type: Spontaneous
  Country: EU (occurrence: EU)
  Receive Date: 20251127
  Receipt Date: 20251127
  Transmission Date: 20260118
  Serious: Yes (Life-Threatening)
  Sender: TEVA
  Company Number: None

PATIENT
  Age: 59 Year
  Sex: Male
  Weight: 90 kg

DRUGS (2)
  1. LOSARTAN [Suspect]
     Active Substance: LOSARTAN
     Indication: Prophylaxis
     Dosage: 1 TABLET ONCE A DAY, TABLET FO / BRAND NAME NOT SPECIFIED
     Route: 048
     Dates: start: 20241205, end: 20250821
  2. ATORVASTATIN [Concomitant]
     Active Substance: ATORVASTATIN
     Indication: Product used for unknown indication
     Dosage: BRAND NAME NOT SPECIFIED
     Route: 048

REACTIONS (5)
  - Arrhythmia [Recovered/Resolved]
  - Blood pressure decreased [Recovered/Resolved]
  - Cerebral infarction [Recovered/Resolved]
  - Palpitations [Recovered/Resolved]
  - Ventricular extrasystoles [Recovered/Resolved]
